FAERS Safety Report 12459196 (Version 1)
Quarter: 2016Q2

REPORT INFORMATION
  Report Type: Spontaneous
  Country: JP (occurrence: JP)
  Receive Date: 20160613
  Receipt Date: 20160613
  Transmission Date: 20160815
  Serious: Yes (Other)
  Sender: FDA-Public Use
  Company Number: JP-SUN PHARMACEUTICAL INDUSTRIES LTD-2016RR-118333

PATIENT
  Age: 46 Year
  Sex: Female

DRUGS (2)
  1. PACLITAXEL. [Suspect]
     Active Substance: PACLITAXEL
     Indication: OVARIAN EPITHELIAL CANCER
     Route: 065
  2. CARBOPLATIN. [Suspect]
     Active Substance: CARBOPLATIN
     Indication: OVARIAN EPITHELIAL CANCER
     Route: 065

REACTIONS (2)
  - Neutropenia [Unknown]
  - Pancreatitis acute [Unknown]
